FAERS Safety Report 10682246 (Version 1)
Quarter: 2014Q4

REPORT INFORMATION
  Report Type: Spontaneous
  Country: US (occurrence: None)
  Receive Date: 20141229
  Receipt Date: 20141229
  Transmission Date: 20150529
  Serious: Yes (Disabling, Other)
  Sender: FDA-Public Use
  Company Number: None

PATIENT
  Age: 43 Year
  Sex: Female
  Weight: 65.77 kg

DRUGS (1)
  1. CIPRO [Suspect]
     Active Substance: CIPROFLOXACIN HYDROCHLORIDE
     Indication: LIMB INJURY
     Route: 048

REACTIONS (13)
  - Paraesthesia [None]
  - Sleep disorder [None]
  - Memory impairment [None]
  - Hypoaesthesia [None]
  - Restlessness [None]
  - Back pain [None]
  - Pain in extremity [None]
  - Impaired driving ability [None]
  - Muscle spasms [None]
  - Burning sensation [None]
  - Arthralgia [None]
  - Cognitive disorder [None]
  - Speech disorder [None]

NARRATIVE: CASE EVENT DATE: 20141125
